FAERS Safety Report 5570446-7 (Version None)
Quarter: 2007Q4

REPORT INFORMATION
  Report Type: 
  Country: None (occurrence: None)
  Receive Date: 20071221
  Receipt Date: 20071019
  Transmission Date: 20080405
  Serious: Yes (Hospitalization)
  Sender: FDA-Public Use
  Company Number: US-BRISTOL-MYERS SQUIBB COMPANY-13882824

PATIENT
  Age: 42 Year
  Sex: Female
  Weight: 110 kg

DRUGS (10)
  1. ORENCIA [Suspect]
     Indication: RHEUMATOID ARTHRITIS
     Dosage: 1 HOUR INFUSION X1 ONLY ON 8/15/07
     Route: 042
     Dates: start: 20070815, end: 20070816
  2. PLAQUENIL [Concomitant]
  3. FOLIC ACID [Concomitant]
  4. ELAVIL [Concomitant]
  5. LORTAB [Concomitant]
     Dosage: LORTAB-5/500MG QID
  6. COLACE CAPS [Concomitant]
  7. PREDNISONE [Concomitant]
  8. METHOTREXATE [Concomitant]
  9. COUMADIN [Concomitant]
  10. FERROUS SULFATE TAB [Concomitant]

REACTIONS (1)
  - ANAPHYLACTIC REACTION [None]
